FAERS Safety Report 4286796-0 (Version None)
Quarter: 2004Q1

REPORT INFORMATION
  Report Type: 
  Country: None (occurrence: None)
  Receive Date: 20040206
  Receipt Date: 20031001
  Transmission Date: 20041129
  Serious: Yes (Hospitalization)
  Sender: FDA-Public Use
  Company Number: US-ROCHE-348252

PATIENT
  Age: 51 Year
  Sex: Male
  Weight: 79.4 kg

DRUGS (8)
  1. PEG-INTERFERON ALFA 2A (RO 25-8310) [Suspect]
     Route: 065
     Dates: start: 20021029, end: 20030923
  2. THYMOSIN ALPHA 1 [Suspect]
     Route: 065
     Dates: start: 20021030, end: 20030921
  3. AMARYL [Concomitant]
     Route: 048
     Dates: start: 20020414
  4. TRICOR [Concomitant]
     Route: 048
     Dates: start: 19980615
  5. EFFEXOR [Concomitant]
     Route: 048
     Dates: start: 19960615
  6. ATIVAN [Concomitant]
     Route: 048
     Dates: start: 20021126
  7. TIGAN [Concomitant]
     Route: 048
     Dates: start: 20020411
  8. UNKNOWN DRUG [Concomitant]
     Route: 048
     Dates: start: 20000615

REACTIONS (2)
  - ABDOMINAL PAIN [None]
  - CONSTIPATION [None]
